FAERS Safety Report 19215763 (Version 2)
Quarter: 2021Q3

REPORT INFORMATION
  Report Type: Report from Study
  Country: None (occurrence: US)
  Receive Date: 20210505
  Receipt Date: 20210707
  Transmission Date: 20211014
  Serious: Yes (Hospitalization, Other)
  Sender: FDA-Public Use
  Company Number: US-ABBVIE-21K-163-3882088-00

PATIENT
  Age: 75 Year
  Sex: Male
  Weight: 102.15 kg

DRUGS (4)
  1. PRAVASTATIN. [Concomitant]
     Active Substance: PRAVASTATIN
     Indication: PRODUCT USED FOR UNKNOWN INDICATION
  2. GLIPIZIDE. [Concomitant]
     Active Substance: GLIPIZIDE
     Indication: DIABETES MELLITUS
  3. HUMIRA [Suspect]
     Active Substance: ADALIMUMAB
     Indication: PSORIASIS
     Route: 058
  4. HYDROCHLOROTHIAZIDE;LISINOPRIL [Concomitant]
     Active Substance: HYDROCHLOROTHIAZIDE\LISINOPRIL
     Indication: BLOOD PRESSURE MEASUREMENT
     Dosage: LISINOPRIL 20 MG?HYDROCHLOROTHIAZIDE 25 MG

REACTIONS (4)
  - Hospitalisation [Unknown]
  - Cauda equina syndrome [Unknown]
  - Urinary retention [Unknown]
  - Spinal cord compression [Recovering/Resolving]

NARRATIVE: CASE EVENT DATE: 20210422
